FAERS Safety Report 20898097 (Version 1)
Quarter: 2022Q2

REPORT INFORMATION
  Report Type: Spontaneous
  Country: BR (occurrence: BR)
  Receive Date: 20220531
  Receipt Date: 20220531
  Transmission Date: 20220720
  Serious: Yes (Hospitalization, Other)
  Sender: FDA-Public Use
  Company Number: BR-SA-SAC20220525000134

PATIENT
  Age: 1 Year
  Sex: Male

DRUGS (1)
  1. LARONIDASE [Suspect]
     Active Substance: LARONIDASE
     Indication: Mucopolysaccharidosis I
     Dosage: UNK
     Route: 042

REACTIONS (4)
  - Lower gastrointestinal haemorrhage [Unknown]
  - Anaemia [Unknown]
  - Vomiting [Unknown]
  - Diarrhoea [Unknown]
